FAERS Safety Report 25417948 (Version 3)
Quarter: 2025Q3

REPORT INFORMATION
  Report Type: Spontaneous
  Country: US (occurrence: US)
  Receive Date: 20250610
  Receipt Date: 20250812
  Transmission Date: 20251021
  Serious: Yes (Other)
  Sender: AMGEN
  Company Number: US-AMGEN-USASP2025110550

PATIENT
  Age: 46 Year
  Sex: Female

DRUGS (54)
  1. TEPEZZA [Suspect]
     Active Substance: TEPROTUMUMAB-TRBW
     Indication: Endocrine ophthalmopathy
     Route: 040
     Dates: start: 202202
  2. TEPEZZA [Suspect]
     Active Substance: TEPROTUMUMAB-TRBW
     Indication: Graves^ disease
     Route: 040
     Dates: start: 20220302
  3. TEPEZZA [Suspect]
     Active Substance: TEPROTUMUMAB-TRBW
     Route: 040
     Dates: start: 202207
  4. TEPEZZA [Suspect]
     Active Substance: TEPROTUMUMAB-TRBW
     Route: 040
     Dates: start: 202208
  5. PREDNISONE [Suspect]
     Active Substance: PREDNISONE
     Indication: Eye inflammation
     Dosage: 20 MILLIGRAM, TID (60 MG EVERY DAY)
     Route: 048
     Dates: start: 2023
  6. PREDNISONE [Suspect]
     Active Substance: PREDNISONE
     Dosage: 20 MILLIGRAM, BID
     Route: 048
  7. LEVOTHYROXINE SODIUM [Concomitant]
     Active Substance: LEVOTHYROXINE SODIUM
     Route: 048
  8. LEVOTHYROXINE SODIUM [Concomitant]
     Active Substance: LEVOTHYROXINE SODIUM
     Route: 048
  9. WELLBUTRIN [Concomitant]
     Active Substance: BUPROPION HYDROCHLORIDE
     Route: 048
  10. LINZESS [Concomitant]
     Active Substance: LINACLOTIDE
     Route: 048
  11. LINZESS [Concomitant]
     Active Substance: LINACLOTIDE
     Route: 065
  12. BASAGLAR KWIKPEN [Concomitant]
     Active Substance: INSULIN GLARGINE
  13. NOVOLOG [Concomitant]
     Active Substance: INSULIN ASPART
     Route: 065
  14. PERCOCET [Concomitant]
     Active Substance: ACETAMINOPHEN\OXYCODONE HYDROCHLORIDE
     Route: 048
  15. LYRICA [Concomitant]
     Active Substance: PREGABALIN
     Route: 048
  16. ZANAFLEX [Concomitant]
     Active Substance: TIZANIDINE HYDROCHLORIDE
  17. KLONOPIN [Concomitant]
     Active Substance: CLONAZEPAM
     Indication: Anxiety
     Route: 048
  18. PHENERGAN [Concomitant]
     Active Substance: PROMETHAZINE HYDROCHLORIDE
     Route: 065
  19. IBUPROFEN [Concomitant]
     Active Substance: IBUPROFEN
     Indication: Back pain
     Route: 065
  20. VITAMIN B12 [Concomitant]
     Active Substance: CYANOCOBALAMIN
     Route: 065
  21. Artificial tears [Concomitant]
     Dosage: UNK, QID
     Route: 047
  22. SELENIUM [Concomitant]
     Active Substance: SELENIUM
  23. SYNTHROID [Concomitant]
     Active Substance: LEVOTHYROXINE SODIUM
     Route: 065
  24. CYANOCOBALAMIN [Concomitant]
     Active Substance: CYANOCOBALAMIN
     Indication: Vitamin B12 deficiency
     Route: 065
  25. TESSALON [Concomitant]
     Active Substance: BENZONATATE
     Indication: Cough
     Route: 048
  26. PRILOSEC [Concomitant]
     Active Substance: OMEPRAZOLE MAGNESIUM
     Dosage: 40 MILLIGRAM, QD
     Route: 048
  27. CEPHALEXIN [Concomitant]
     Active Substance: CEPHALEXIN
  28. PROZAC [Concomitant]
     Active Substance: FLUOXETINE HYDROCHLORIDE
     Route: 048
  29. DIFLUCAN [Concomitant]
     Active Substance: FLUCONAZOLE
     Indication: Fungal infection
     Route: 065
  30. LEVAQUIN [Concomitant]
     Active Substance: LEVOFLOXACIN
     Route: 048
  31. CLEOCIN [Concomitant]
     Active Substance: CLINDAMYCIN PHOSPHATE
     Dosage: 300 MILLIGRAM, TID
     Route: 048
  32. FEMRING [Concomitant]
     Active Substance: ESTRADIOL ACETATE
     Route: 015
  33. MUCINEX [Concomitant]
     Active Substance: GUAIFENESIN
     Dosage: 600 MILLIGRAM, BID (TWO TABLET BID)
     Route: 048
  34. PHENERGAN W/ CODEINE [Concomitant]
     Active Substance: CODEINE PHOSPHATE\PROMETHAZINE HYDROCHLORIDE
     Indication: Cough
     Route: 048
  35. ALBUTEROL SULFATE [Concomitant]
     Active Substance: ALBUTEROL SULFATE
  36. CYMBALTA [Concomitant]
     Active Substance: DULOXETINE HYDROCHLORIDE
     Indication: Depression
     Dosage: 30 MILLIGRAM, QD
     Route: 048
  37. CYMBALTA [Concomitant]
     Active Substance: DULOXETINE HYDROCHLORIDE
     Dosage: 60 MILLIGRAM, QD
     Route: 065
  38. KENALOG [Concomitant]
     Active Substance: TRIAMCINOLONE ACETONIDE
  39. MYCOSTATIN [Concomitant]
     Active Substance: NYSTATIN
  40. PHOSPHORIC ACID\SODIUM PHOSPHATE, DIBASIC [Concomitant]
     Active Substance: PHOSPHORIC ACID\SODIUM PHOSPHATE, DIBASIC
     Route: 054
  41. APIDRA SOLOSTAR [Concomitant]
     Active Substance: INSULIN GLULISINE
  42. WELLBUTRIN XL [Concomitant]
     Active Substance: BUPROPION HYDROCHLORIDE
     Indication: Depression
     Route: 065
  43. ESTRING [Concomitant]
     Active Substance: ESTRADIOL
     Route: 067
  44. ERYTHROMYCIN [Concomitant]
     Active Substance: ERYTHROMYCIN
     Dosage: UNK UNK, TID
     Route: 047
  45. TIZANIDINE HYDROCHLORIDE [Concomitant]
     Active Substance: TIZANIDINE HYDROCHLORIDE
     Route: 065
  46. CLONAZEPAM [Concomitant]
     Active Substance: CLONAZEPAM
     Route: 048
  47. PROMETHAZINE HYDROCHLORIDE [Concomitant]
     Active Substance: PROMETHAZINE HYDROCHLORIDE
     Route: 065
  48. B12 [Concomitant]
     Route: 065
  49. MEDROL [Concomitant]
     Active Substance: METHYLPREDNISOLONE
     Route: 048
  50. AUGMENTIN [Concomitant]
     Active Substance: AMOXICILLIN\CLAVULANATE POTASSIUM
     Dosage: 875 MILLIGRAM, BID
     Route: 048
  51. REFRESH P.M. [Concomitant]
     Active Substance: MINERAL OIL\PETROLATUM
     Dosage: UNK UNK, QHS
     Route: 047
  52. SYSTANE (HYPROMELLOSE 2910 (4000 MPA.S)) [Concomitant]
     Active Substance: HYPROMELLOSE 2910 (4000 MPA.S)
     Dosage: UNK UNK, QHS
     Route: 047
  53. GENTEAL MODERATE TO SEVERE GEL DROPS [Concomitant]
     Active Substance: CARBOXYMETHYLCELLULOSE SODIUM\HYPROMELLOSES
     Dosage: UNK UNK, QHS
     Route: 047
  54. Optase comfort [Concomitant]
     Dosage: UNK UNK, QHS
     Route: 047

REACTIONS (42)
  - Deafness neurosensory [Not Recovered/Not Resolved]
  - Inflammatory bowel disease [Unknown]
  - Blindness [Unknown]
  - Endocrine ophthalmopathy [Unknown]
  - Graves^ disease [Unknown]
  - Migraine [Recovered/Resolved]
  - Anxiety [Unknown]
  - Emotional distress [Unknown]
  - Neck pain [Unknown]
  - Discomfort [Unknown]
  - Dry mouth [Unknown]
  - Oropharyngeal pain [Unknown]
  - Impaired quality of life [Unknown]
  - Back pain [Unknown]
  - Eye discharge [Unknown]
  - Diarrhoea [Unknown]
  - Weight decreased [Recovering/Resolving]
  - Alopecia [Unknown]
  - Muscle spasms [Unknown]
  - Nausea [Unknown]
  - Tinnitus [Not Recovered/Not Resolved]
  - Weight increased [Unknown]
  - Decreased appetite [Unknown]
  - Blood pressure inadequately controlled [Unknown]
  - Myalgia [Unknown]
  - Arthralgia [Unknown]
  - Cough [Unknown]
  - Skin discolouration [Unknown]
  - Erythema [Unknown]
  - Chest discomfort [Unknown]
  - Dyspnoea [Unknown]
  - Dysuria [Unknown]
  - Off label use [Unknown]
  - Product use complaint [Unknown]
  - Peripheral swelling [Unknown]
  - Stress [Unknown]
  - Gastrointestinal disorder [Unknown]
  - Rash [Unknown]
  - Asthenia [Unknown]
  - Glycosylated haemoglobin increased [Unknown]
  - Fatigue [Unknown]
  - Hyperglycaemia [Unknown]

NARRATIVE: CASE EVENT DATE: 20220101
